FAERS Safety Report 6059632-X (Version None)
Quarter: 2009Q1

REPORT INFORMATION
  Report Type: 
  Country: None (occurrence: None)
  Receive Date: 20090130
  Receipt Date: 20090119
  Transmission Date: 20090719
  Serious: Yes (Hospitalization)
  Sender: FDA-Public Use
  Company Number: DE-BIOGENIDEC-2008BI032484

PATIENT
  Age: 57 Year
  Sex: Female
  Weight: 79 kg

DRUGS (8)
  1. TYSABRI [Suspect]
     Indication: MULTIPLE SCLEROSIS
     Route: 042
     Dates: start: 20080118
  2. ACETYLSALICYLACID [Concomitant]
  3. NSAIDS [Concomitant]
  4. ACETAMINOPHEN [Concomitant]
  5. DIABETES MEDICATIONS [Concomitant]
     Indication: DIABETES MELLITUS
  6. HYGROTON 25 [Concomitant]
     Indication: HYPERTENSION
  7. ENALAPRIL 100 [Concomitant]
     Indication: HYPERTENSION
  8. METFORMIN 1000 [Concomitant]
     Indication: DIABETES MELLITUS

REACTIONS (1)
  - LUMBAR SPINAL STENOSIS [None]
